FAERS Safety Report 14171392 (Version 2)
Quarter: 2017Q4

REPORT INFORMATION
  Report Type: Spontaneous
  Country: HU (occurrence: HU)
  Receive Date: 20171108
  Receipt Date: 20171228
  Transmission Date: 20180321
  Serious: Yes (Hospitalization)
  Sender: FDA-Public Use
  Company Number: HU-ELI_LILLY_AND_COMPANY-HU201711000087

PATIENT
  Age: 42 Year
  Sex: Male

DRUGS (2)
  1. ZYPADHERA [Suspect]
     Active Substance: OLANZAPINE PAMOATE
     Indication: SCHIZOPHRENIA
     Dosage: 300 MG, MONTHLY (1/M)
     Route: 030
     Dates: start: 200911, end: 201002
  2. ZYPADHERA [Suspect]
     Active Substance: OLANZAPINE PAMOATE
     Dosage: 405 MG, MONTHLY (1/M)
     Route: 030
     Dates: start: 201002

REACTIONS (7)
  - Limb discomfort [Recovered/Resolved]
  - Injection site haemorrhage [Unknown]
  - Hyperhidrosis [Recovered/Resolved]
  - Aggression [Recovered/Resolved]
  - Post-injection delirium sedation syndrome [Recovered/Resolved]
  - Dizziness [Recovered/Resolved]
  - Somnolence [Recovered/Resolved]

NARRATIVE: CASE EVENT DATE: 20171030
